FAERS Safety Report 11357483 (Version 1)
Quarter: 2015Q3

REPORT INFORMATION
  Report Type: Spontaneous
  Country: US (occurrence: US)
  Receive Date: 20150803
  Receipt Date: 20150803
  Transmission Date: 20151125
  Serious: No
  Sender: FDA-Public Use
  Company Number: US-ELI_LILLY_AND_COMPANY-US201204007650

PATIENT
  Sex: Male
  Weight: 181.41 kg

DRUGS (3)
  1. NAPROXIN                           /00256201/ [Concomitant]
     Active Substance: NAPROXEN
  2. STRATTERA [Suspect]
     Active Substance: ATOMOXETINE HYDROCHLORIDE
     Indication: DISTURBANCE IN ATTENTION
  3. LORTAB [Concomitant]
     Active Substance: ACETAMINOPHEN\HYDROCODONE BITARTRATE

REACTIONS (2)
  - Expired product administered [Unknown]
  - Pain in extremity [Not Recovered/Not Resolved]
